FAERS Safety Report 8059651-8 (Version None)
Quarter: 2012Q1

REPORT INFORMATION
  Report Type: 
  Country: None (occurrence: None)
  Receive Date: 20120119
  Receipt Date: 20120119
  Transmission Date: 20120608
  Serious: Yes (Hospitalization)
  Sender: FDA-Public Use
  Company Number: None

PATIENT
  Age: 80 Year
  Sex: Male
  Weight: 80 kg

DRUGS (8)
  1. BACTRIM DS [Suspect]
     Indication: SKIN INFECTION
     Dosage: 2 TABS BID PO RECENT
     Route: 048
  2. M.V.I. [Concomitant]
  3. LIPITOR [Concomitant]
  4. VITAMIN D [Concomitant]
  5. COZAAR [Suspect]
     Indication: HYPERTENSION
     Dosage: 12.5 MG DAILY PO CHRONIC
     Route: 048
  6. METFORMIN HCL [Concomitant]
  7. ASPIRIN [Concomitant]
  8. FISH OIL [Concomitant]

REACTIONS (4)
  - BLOOD SODIUM DECREASED [None]
  - DYSPNOEA EXERTIONAL [None]
  - HYPOKALAEMIA [None]
  - ASTHENIA [None]
